FAERS Safety Report 14513680 (Version 1)
Quarter: 2018Q1

REPORT INFORMATION
  Report Type: Spontaneous
  Country: JP (occurrence: JP)
  Receive Date: 20180209
  Receipt Date: 20180209
  Transmission Date: 20180509
  Serious: Yes (Other)
  Sender: FDA-Public Use
  Company Number: JP-PFIZER INC-2018032772

PATIENT
  Age: 15 Year
  Sex: Male
  Weight: 60 kg

DRUGS (4)
  1. CRAVIT [Suspect]
     Active Substance: LEVOFLOXACIN
     Dosage: 500 MG, 1X/DAY (AFTER LUNCH)
     Route: 048
     Dates: start: 20180110, end: 20180110
  2. SOLU-MEDROL [Suspect]
     Active Substance: METHYLPREDNISOLONE SODIUM SUCCINATE
     Indication: VISUAL IMPAIRMENT
     Dosage: 900 MG/15MIN
     Route: 041
     Dates: start: 20180110, end: 20180110
  3. SOLU-MEDROL [Suspect]
     Active Substance: METHYLPREDNISOLONE SODIUM SUCCINATE
     Indication: OPTIC NERVE INJURY
     Dosage: 900 MG/H
     Route: 041
     Dates: start: 20180110, end: 20180110
  4. BFLUID [Suspect]
     Active Substance: AMINO ACIDS\DEXTROSE\ELECTROLYTES NOS\VITAMINS
     Dosage: CONTAINING VITAMIN C, B1, B6, B12, B2
     Route: 041
     Dates: start: 20180110, end: 20180110

REACTIONS (6)
  - Dysgeusia [Recovered/Resolved]
  - Nausea [Recovered/Resolved]
  - Eyelid oedema [Recovered/Resolved]
  - Generalised erythema [Recovered/Resolved]
  - Drug administration error [Unknown]
  - Urticaria [Recovered/Resolved]

NARRATIVE: CASE EVENT DATE: 20180110
